FAERS Safety Report 8429753-2 (Version None)
Quarter: 2012Q2

REPORT INFORMATION
  Report Type: 
  Country: None (occurrence: None)
  Receive Date: 20120612
  Receipt Date: 20120601
  Transmission Date: 20120825
  Serious: Yes (Hospitalization)
  Sender: FDA-Public Use
  Company Number: DK-ASTRAZENECA-2012SE38367

PATIENT
  Age: 62 Year
  Sex: Male

DRUGS (5)
  1. METOPROLOL SUCCINATE [Suspect]
     Dosage: 2X200 MG AND 1X50 MG
     Route: 048
  2. CORDARONE [Concomitant]
  3. METOPROLOL SUCCINATE [Suspect]
     Dosage: PRESCRIBED 200 MG DAILY
     Route: 048
  4. NORVASC [Concomitant]
     Indication: HYPERTENSION
  5. METOPROLOL SUCCINATE [Suspect]
     Indication: ARRHYTHMIA
     Route: 048

REACTIONS (3)
  - BRADYCARDIA [None]
  - ACCIDENTAL OVERDOSE [None]
  - POISONING [None]
